FAERS Safety Report 25764262 (Version 1)
Quarter: 2025Q3

REPORT INFORMATION
  Report Type: Spontaneous
  Country: US (occurrence: US)
  Receive Date: 20250905
  Receipt Date: 20250905
  Transmission Date: 20251021
  Serious: No
  Sender: DOMPE FARMACEUTICI
  Company Number: US-FARMAPROD-202412-4269

PATIENT
  Sex: Female

DRUGS (20)
  1. OXERVATE [Suspect]
     Active Substance: CENEGERMIN-BKBJ
     Indication: Neurotrophic keratopathy
     Route: 047
     Dates: start: 20240916
  2. ASPIRIN [Concomitant]
     Active Substance: ASPIRIN
  3. FISH OIL [Concomitant]
     Active Substance: FISH OIL
  4. CRANBERRY [Concomitant]
     Active Substance: CRANBERRY
  5. VITAMINS [Concomitant]
     Active Substance: VITAMINS
  6. NOVOLOG [Concomitant]
     Active Substance: INSULIN ASPART
  7. WIXELA INHUB [Concomitant]
     Active Substance: FLUTICASONE PROPIONATE\SALMETEROL XINAFOATE
  8. TYVASO DPI [Concomitant]
     Active Substance: TREPROSTINIL
  9. ERRIN [Concomitant]
     Active Substance: NORETHINDRONE
  10. OPSUMIT [Concomitant]
     Active Substance: MACITENTAN
  11. ROSUVASTATIN CALCIUM [Concomitant]
     Active Substance: ROSUVASTATIN CALCIUM
  12. OFEV [Concomitant]
     Active Substance: NINTEDANIB
  13. LOSARTAN POTASSIUM [Concomitant]
     Active Substance: LOSARTAN POTASSIUM
  14. METOPROLOL SUCCINATE [Concomitant]
     Active Substance: METOPROLOL SUCCINATE
  15. NIFEDIPINE [Concomitant]
     Active Substance: NIFEDIPINE
  16. PREDNISOLONE [Concomitant]
     Active Substance: PREDNISOLONE
  17. PROGRAF [Concomitant]
     Active Substance: TACROLIMUS
  18. CELLCEPT [Concomitant]
     Active Substance: MYCOPHENOLATE MOFETIL
  19. PANTOPRAZOLE SODIUM [Concomitant]
     Active Substance: PANTOPRAZOLE SODIUM
  20. LEVOTHYROXINE SODIUM [Concomitant]
     Active Substance: LEVOTHYROXINE SODIUM

REACTIONS (1)
  - Dyspnoea [Unknown]
